FAERS Safety Report 9720058 (Version 1)
Quarter: 2013Q4

REPORT INFORMATION
  Report Type: Spontaneous
  Country: US (occurrence: US)
  Receive Date: 20131128
  Receipt Date: 20131128
  Transmission Date: 20140711
  Serious: Yes (Disabling)
  Sender: FDA-Public Use
  Company Number: US-GE HEALTHCARE MEDICAL DIAGNOSTICS-OSCN-PR-1311S-0094

PATIENT
  Age: 41 Year
  Sex: Female

DRUGS (3)
  1. GADOLINIUM (UNSPECIFIED) [Suspect]
     Indication: HYPOTHALAMO-PITUITARY DISORDER
     Dates: start: 20020516, end: 20020516
  2. GADOLINIUM (UNSPECIFIED) [Suspect]
     Dates: start: 20020627, end: 20020627
  3. GADOLINIUM (UNSPECIFIED) [Suspect]
     Dates: start: 20030417, end: 20030417

REACTIONS (1)
  - Nephrogenic systemic fibrosis [Not Recovered/Not Resolved]
